FAERS Safety Report 10518236 (Version 1)
Quarter: 2014Q4

REPORT INFORMATION
  Report Type: Spontaneous
  Country: US (occurrence: None)
  Receive Date: 20141014
  Receipt Date: 20141014
  Transmission Date: 20150528
  Serious: Yes (Death, Life-Threatening, Hospitalization)
  Sender: FDA-Public Use
  Company Number: None

PATIENT
  Age: 57 Year
  Sex: Female
  Weight: 104 kg

DRUGS (1)
  1. PROPRANOLOL [Suspect]
     Active Substance: PROPRANOLOL\PROPRANOLOL HYDROCHLORIDE
     Dates: start: 20141010, end: 20141010

REACTIONS (7)
  - Unresponsive to stimuli [None]
  - Bradycardia [None]
  - Cardiac arrest [None]
  - Completed suicide [None]
  - Respiratory arrest [None]
  - Blood pressure decreased [None]
  - Intentional overdose [None]

NARRATIVE: CASE EVENT DATE: 20141010
